FAERS Safety Report 5011389-7 (Version None)
Quarter: 2006Q2

REPORT INFORMATION
  Report Type: 
  Country: None (occurrence: None)
  Receive Date: 20060524
  Receipt Date: 20060508
  Transmission Date: 20061013
  Serious: Yes (Hospitalization, Disabling)
  Sender: FDA-Public Use
  Company Number: THYR-10310

PATIENT
  Age: 82 Year
  Sex: Female

DRUGS (2)
  1. THYROGEN [Suspect]
     Indication: DIAGNOSTIC PROCEDURE
     Dosage: 0.9 MG ONCE IM
     Route: 030
     Dates: start: 20050601, end: 20050601
  2. SYNTHROID [Concomitant]

REACTIONS (11)
  - ABASIA [None]
  - ARRHYTHMIA [None]
  - BACK PAIN [None]
  - BLINDNESS [None]
  - CATARACT [None]
  - CHEST DISCOMFORT [None]
  - DISLOCATION OF VERTEBRA [None]
  - INJURY [None]
  - LOSS OF CONSCIOUSNESS [None]
  - POISONING [None]
  - PYREXIA [None]
